FAERS Safety Report 11651681 (Version 1)
Quarter: 2015Q4

REPORT INFORMATION
  Report Type: Spontaneous
  Country: BR (occurrence: BR)
  Receive Date: 20151022
  Receipt Date: 20151022
  Transmission Date: 20160304
  Serious: Yes (Other)
  Sender: FDA-Public Use
  Company Number: BR-ASTRAZENECA-2015SF00751

PATIENT
  Age: 74 Year
  Sex: Male

DRUGS (7)
  1. METFORMIN XR+SITAGLIPTIN [Concomitant]
     Indication: DIABETES MELLITUS
     Dosage: METFORMINXR 2G/ DAY+ SITAGLIPTIN100MG/ DAY
  2. ATORVASTATIN [Concomitant]
     Active Substance: ATORVASTATIN
     Indication: DYSLIPIDAEMIA
  3. ASA [Concomitant]
     Active Substance: ASPIRIN
     Indication: ACUTE MYOCARDIAL INFARCTION
  4. METFORMIN [Suspect]
     Active Substance: METFORMIN HYDROCHLORIDE
     Dosage: 2 G, DAILY (NON AZ PRODUCT)
     Route: 065
  5. CIPROFIBRATE [Concomitant]
     Active Substance: CIPROFIBRATE
     Indication: DYSLIPIDAEMIA
  6. CLOPIDOGREL+ASA [Concomitant]
     Indication: ACUTE MYOCARDIAL INFARCTION
     Dosage: CLOPIDOGREL75MG/DAY+ ASA 200MG/DAY
  7. DAPAGLIFLOZIN [Suspect]
     Active Substance: DAPAGLIFLOZIN
     Route: 048

REACTIONS (2)
  - Acute myocardial infarction [Unknown]
  - Weight decreased [Unknown]
